FAERS Safety Report 17993757 (Version 7)
Quarter: 2021Q3

REPORT INFORMATION
  Report Type: Spontaneous
  Country: DE (occurrence: DE)
  Receive Date: 20200708
  Receipt Date: 20210708
  Transmission Date: 20211014
  Serious: Yes (Other)
  Sender: FDA-Public Use
  Company Number: NVSC2020DE190389

PATIENT
  Age: 30 Year
  Sex: Male

DRUGS (11)
  1. LAMOTRIGINE. [Suspect]
     Active Substance: LAMOTRIGINE
     Indication: SEIZURE
     Dosage: 2000 MG, QD
     Route: 065
  2. XARELTO [Interacting]
     Active Substance: RIVAROXABAN
     Indication: EPILEPSY
     Dosage: 20 MG, QD
     Route: 048
  3. XARELTO [Interacting]
     Active Substance: RIVAROXABAN
     Indication: DEEP VEIN THROMBOSIS
     Dosage: 15 MG, QD
     Route: 048
  4. PIPAMPERONE [Concomitant]
     Active Substance: PIPAMPERONE
     Indication: EPILEPSY
     Dosage: 20 MILLIGRAM DAILY;
     Route: 065
  5. PERAMPANEL [Concomitant]
     Active Substance: PERAMPANEL
     Indication: EPILEPSY
     Dosage: 8 MG, QD (FOLLOW?UP DAILY DOSE: 8 MG)
     Route: 065
  6. VALPROATE [Interacting]
     Active Substance: VALPROIC ACID
     Indication: EPILEPSY
     Dosage: 200 MG, QD
     Route: 065
  7. LAMOTRIGINE. [Suspect]
     Active Substance: LAMOTRIGINE
     Indication: EPILEPSY
     Dosage: 200 MG, QD
     Route: 065
  8. LAMOTRIGINE. [Suspect]
     Active Substance: LAMOTRIGINE
     Indication: PARTIAL SEIZURES
     Dosage: 400 MG, QD
     Route: 065
  9. VALPROATE [Interacting]
     Active Substance: VALPROIC ACID
     Indication: PARTIAL SEIZURES
  10. XARELTO [Interacting]
     Active Substance: RIVAROXABAN
     Indication: ANTICOAGULANT THERAPY
  11. VALPROATE [Interacting]
     Active Substance: VALPROIC ACID
     Indication: SEIZURE
     Dosage: 2000 MG, QD
     Route: 065

REACTIONS (5)
  - Deep vein thrombosis [Unknown]
  - Hyperhomocysteinaemia [Unknown]
  - Anticoagulation drug level decreased [Recovered/Resolved]
  - Inhibitory drug interaction [Unknown]
  - Drug interaction [Unknown]
